FAERS Safety Report 5843661-2 (Version None)
Quarter: 2008Q3

REPORT INFORMATION
  Report Type: 
  Country: None (occurrence: None)
  Receive Date: 20080812
  Receipt Date: 20080812
  Transmission Date: 20090109
  Serious: Yes (Hospitalization)
  Sender: FDA-Public Use
  Company Number: None

PATIENT
  Sex: Male
  Weight: 96.3 kg

DRUGS (16)
  1. CYCLOPHOSPHAMIDE [Suspect]
     Dosage: 1658 MG
  2. DOXIL [Suspect]
     Dosage: 88 MG
  3. NEULASTA [Suspect]
     Dosage: 6 MG
  4. PREDNISONE [Suspect]
     Dosage: 450 MG
  5. RITUXIMAB (MOAB C2B8 ANTI CD20, CHIMERIC) [Suspect]
     Dosage: 829 MG
  6. VINCRISTINE SULFATE [Suspect]
     Dosage: 2 MG
  7. ABH [Concomitant]
  8. AMBIEN [Concomitant]
  9. COREG [Concomitant]
  10. DARVON [Concomitant]
  11. IMDUR [Concomitant]
  12. LIPITOR [Concomitant]
  13. METANX [Concomitant]
  14. PEPCID [Concomitant]
  15. ZOFRAN [Concomitant]
  16. ZOVIRAX [Concomitant]

REACTIONS (1)
  - PNEUMONIA [None]
